FAERS Safety Report 10681435 (Version 2)
Quarter: 2015Q1

REPORT INFORMATION
  Report Type: Spontaneous
  Country: US (occurrence: US)
  Receive Date: 20141230
  Receipt Date: 20150122
  Transmission Date: 20150720
  Serious: Yes (Death, Hospitalization, Other)
  Sender: FDA-Public Use
  Company Number: US-GILEAD-2014-0129186

PATIENT
  Age: 76 Year
  Sex: Male

DRUGS (2)
  1. REVATIO [Concomitant]
     Active Substance: SILDENAFIL CITRATE
     Dosage: UNK
  2. LETAIRIS [Suspect]
     Active Substance: AMBRISENTAN
     Indication: PRODUCT USED FOR UNKNOWN INDICATION
     Dosage: 5 MG, QD
     Route: 065
     Dates: start: 20110502

REACTIONS (4)
  - Cardiac arrest [Unknown]
  - Staphylococcal abscess [Unknown]
  - Death [Fatal]
  - Malaise [Unknown]

NARRATIVE: CASE EVENT DATE: 20150108
